FAERS Safety Report 17892452 (Version 1)
Quarter: 2020Q2

REPORT INFORMATION
  Report Type: Spontaneous
  Country: IT (occurrence: IT)
  Receive Date: 20200613
  Receipt Date: 20200613
  Transmission Date: 20200714
  Serious: Yes (Other)
  Sender: FDA-Public Use
  Company Number: IT-AUROBINDO-AUR-APL-2020-028604

PATIENT
  Age: 84 Year
  Sex: Female

DRUGS (4)
  1. ASPIRINA [Suspect]
     Active Substance: ASPIRIN
     Indication: ANTIINFLAMMATORY THERAPY
     Route: 048
     Dates: start: 20200507, end: 20200507
  2. TOBRADEX [Suspect]
     Active Substance: DEXAMETHASONE\TOBRAMYCIN
     Indication: EYE INFECTION
     Route: 047
     Dates: start: 20200507, end: 20200507
  3. PARACETAMOL [Suspect]
     Active Substance: ACETAMINOPHEN
     Indication: ANTIINFLAMMATORY THERAPY
     Route: 048
     Dates: start: 20200507, end: 20200507
  4. OKI [Suspect]
     Active Substance: KETOPROFEN LYSINE
     Indication: ANTIINFLAMMATORY THERAPY
     Route: 048
     Dates: start: 20200507, end: 20200507

REACTIONS (6)
  - Erythema [Recovering/Resolving]
  - Localised oedema [Recovering/Resolving]
  - Ocular hyperaemia [Recovering/Resolving]
  - Face oedema [Recovering/Resolving]
  - Eye pruritus [Recovering/Resolving]
  - Pruritus [Recovering/Resolving]

NARRATIVE: CASE EVENT DATE: 20200507
